FAERS Safety Report 5480094-5 (Version None)
Quarter: 2007Q4

REPORT INFORMATION
  Report Type: 
  Country: None (occurrence: None)
  Receive Date: 20071009
  Receipt Date: 20070927
  Transmission Date: 20080405
  Serious: Yes (Hospitalization)
  Sender: FDA-Public Use
  Company Number: AT-JNJFOC-20070401418

PATIENT
  Sex: Male
  Weight: 81 kg

DRUGS (5)
  1. INFLIXIMAB [Suspect]
     Route: 042
  2. INFLIXIMAB [Suspect]
     Indication: CROHN'S DISEASE
     Route: 042
  3. SULFASALAZINE [Concomitant]
  4. ANTIBIOTICS [Concomitant]
  5. THIOGUANINE [Concomitant]

REACTIONS (1)
  - MENINGITIS LISTERIA [None]
